FAERS Safety Report 4944467-9 (Version None)
Quarter: 2006Q1

REPORT INFORMATION
  Report Type: 
  Country: None (occurrence: None)
  Receive Date: 20060315
  Receipt Date: 20051020
  Transmission Date: 20060701
  Serious: Yes (Hospitalization)
  Sender: FDA-Public Use
  Company Number: US-BRISTOL-MYERS SQUIBB COMPANY-13158225

PATIENT
  Age: 72 Year
  Sex: Male

DRUGS (4)
  1. ERBITUX [Suspect]
     Indication: COLON CANCER STAGE IV
     Route: 042
     Dates: start: 20050926, end: 20050926
  2. CIMETIDINE [Concomitant]
     Route: 042
  3. DEXAMETHASONE TAB [Concomitant]
     Route: 042
  4. DIPHENHYDRAMINE [Concomitant]
     Route: 042

REACTIONS (6)
  - BLOOD PRESSURE ABNORMAL [None]
  - COLD SWEAT [None]
  - LETHARGY [None]
  - PRURITUS [None]
  - URTICARIA [None]
  - VOMITING [None]
